FAERS Safety Report 18599944 (Version 1)
Quarter: 2020Q4

REPORT INFORMATION
  Report Type: Spontaneous
  Country: JP (occurrence: JP)
  Receive Date: 20201210
  Receipt Date: 20201210
  Transmission Date: 20210114
  Serious: Yes (Other)
  Sender: FDA-Public Use
  Company Number: JP-ASTRAZENECA-2020SF62866

PATIENT
  Age: 75 Year
  Sex: Female

DRUGS (3)
  1. FASENRA [Suspect]
     Active Substance: BENRALIZUMAB
     Indication: ASTHMA
     Dosage: EVERY FOUR WEEKS
     Route: 058
     Dates: start: 201901
  2. INSULIN [Concomitant]
     Active Substance: INSULIN NOS
     Indication: DIABETES MELLITUS
     Route: 065
  3. FASENRA [Suspect]
     Active Substance: BENRALIZUMAB
     Indication: ASTHMA
     Dosage: EVERY EIGHT WEEKS
     Route: 058

REACTIONS (4)
  - Pancreatitis acute [Unknown]
  - Pyrexia [Unknown]
  - Diabetes mellitus [Unknown]
  - Urticaria [Unknown]

NARRATIVE: CASE EVENT DATE: 2020
